FAERS Safety Report 10046292 (Version 1)
Quarter: 2014Q1

REPORT INFORMATION
  Report Type: Spontaneous
  Country: US (occurrence: US)
  Receive Date: 20140331
  Receipt Date: 20140331
  Transmission Date: 20141002
  Serious: No
  Sender: FDA-Public Use
  Company Number: US-BIOGENIDEC-2014BI027019

PATIENT
  Age: 36 Year
  Sex: Female

DRUGS (7)
  1. TECFIDERA [Suspect]
     Indication: MULTIPLE SCLEROSIS
     Route: 048
  2. CELEBREX [Concomitant]
  3. FIORICET [Concomitant]
  4. OXYCODONE HCL [Concomitant]
  5. TOPAMAX [Concomitant]
  6. VITAMIN D (ERGOCALCIFEROL) [Concomitant]
  7. XANAX [Concomitant]

REACTIONS (2)
  - Adverse event [Unknown]
  - Burning sensation [Unknown]
